FAERS Safety Report 21727588 (Version 5)
Quarter: 2023Q1

REPORT INFORMATION
  Report Type: Report from Study
  Country: CO (occurrence: CO)
  Receive Date: 20221214
  Receipt Date: 20230301
  Transmission Date: 20230418
  Serious: Yes (Other)
  Sender: FDA-Public Use
  Company Number: CO-BAYER-2022A169674

PATIENT
  Age: 84 Year
  Sex: Male

DRUGS (2)
  1. EYLEA [Suspect]
     Active Substance: AFLIBERCEPT
     Indication: Age-related macular degeneration
     Dosage: OU, SOLUTION FOR INJECTION
     Route: 031
     Dates: start: 20221007, end: 20221007
  2. EYLEA [Suspect]
     Active Substance: AFLIBERCEPT
     Dosage: OS, SOLUTION FOR INJECTION
     Route: 031
     Dates: start: 20221130, end: 20221130

REACTIONS (7)
  - Noninfective retinitis [Recovered/Resolved]
  - Blindness unilateral [Not Recovered/Not Resolved]
  - Eye inflammation [Unknown]
  - Inappropriate schedule of product administration [Unknown]
  - Injection site pain [Not Recovered/Not Resolved]
  - Vision blurred [Not Recovered/Not Resolved]
  - Eye swelling [Not Recovered/Not Resolved]

NARRATIVE: CASE EVENT DATE: 20221130
